FAERS Safety Report 15648135 (Version 2)
Quarter: 2018Q4

REPORT INFORMATION
  Report Type: Spontaneous
  Country: US (occurrence: US)
  Receive Date: 20181122
  Receipt Date: 20181211
  Transmission Date: 20190205
  Serious: No
  Sender: FDA-Public Use
  Company Number: US-PFIZER INC-2018404312

PATIENT
  Age: 47 Year
  Sex: Male
  Weight: 64.4 kg

DRUGS (2)
  1. LYRICA [Suspect]
     Active Substance: PREGABALIN
     Indication: PAIN
  2. LYRICA [Suspect]
     Active Substance: PREGABALIN
     Indication: SPINOCEREBELLAR ATAXIA
     Dosage: 50 MG, 1X/DAY (ONCE EACH EVENING)
     Route: 048
     Dates: start: 201810

REACTIONS (5)
  - Drug effect incomplete [Unknown]
  - Somnolence [Unknown]
  - Product use issue [Unknown]
  - Hypoaesthesia [Unknown]
  - Fall [Unknown]

NARRATIVE: CASE EVENT DATE: 201810
